FAERS Safety Report 7176651-0 (Version None)
Quarter: 2010Q4

REPORT INFORMATION
  Report Type: 
  Country: None (occurrence: None)
  Receive Date: 20101220
  Receipt Date: 20101209
  Transmission Date: 20110411
  Serious: Yes (Death, Hospitalization)
  Sender: FDA-Public Use
  Company Number: US-PFIZER INC-2009187789

PATIENT
  Sex: Female
  Weight: 50 kg

DRUGS (2)
  1. EXEMESTANE [Suspect]
     Indication: BREAST CANCER
     Dosage: 25 MG, 1X/DAY
     Route: 048
     Dates: start: 20050322
  2. IBANDRONATE SODIUM [Suspect]
     Dosage: 3 MG, Q 3 MOS, IV PUSH
     Route: 042
     Dates: start: 20080326, end: 20090114

REACTIONS (14)
  - ATRIAL FIBRILLATION [None]
  - CARDIAC FAILURE CONGESTIVE [None]
  - CARDIOMEGALY [None]
  - CHRONIC OBSTRUCTIVE PULMONARY DISEASE [None]
  - DEMENTIA [None]
  - DYSPNOEA [None]
  - HYPERTENSION [None]
  - LEFT ATRIAL DILATATION [None]
  - LEFT VENTRICULAR HYPERTROPHY [None]
  - MITRAL VALVE INCOMPETENCE [None]
  - PALPITATIONS [None]
  - PLEURAL EFFUSION [None]
  - TACHYCARDIA [None]
  - VERTIGO [None]
